FAERS Safety Report 6745119-5 (Version None)
Quarter: 2010Q2

REPORT INFORMATION
  Report Type: 
  Country: None (occurrence: None)
  Receive Date: 20100527
  Receipt Date: 20100521
  Transmission Date: 20101027
  Serious: Yes (Hospitalization)
  Sender: FDA-Public Use
  Company Number: FR-GENENTECH-301121

PATIENT
  Sex: Male
  Weight: 74 kg

DRUGS (3)
  1. RITUXIMAB [Suspect]
     Indication: B-CELL LYMPHOMA
     Dosage: 712 MG, UNK
     Route: 042
     Dates: start: 20080117
  2. RITUXIMAB [Suspect]
     Dosage: 712.5 MG, UNK
     Route: 042
     Dates: start: 20080124
  3. RITUXIMAB [Suspect]
     Dosage: 712 MG, UNK
     Route: 042
     Dates: start: 20080522, end: 20091202

REACTIONS (1)
  - PNEUMOTHORAX [None]
